FAERS Safety Report 6815351-0 (Version None)
Quarter: 2010Q3

REPORT INFORMATION
  Report Type: 
  Country: None (occurrence: None)
  Receive Date: 20100702
  Receipt Date: 20100625
  Transmission Date: 20110219
  Serious: Yes (Hospitalization)
  Sender: FDA-Public Use
  Company Number: TR-ELI_LILLY_AND_COMPANY-TR201006006873

PATIENT

DRUGS (5)
  1. HUMULIN R [Suspect]
     Dosage: 4 IU
     Route: 064
  2. HUMULIN R [Suspect]
     Dosage: 4 IU, DAILY (1/D) AT NOON
     Route: 064
  3. HUMULIN R [Suspect]
     Dosage: 4 IU, EACH EVENING
     Route: 064
  4. HUMULIN N [Suspect]
     Dosage: 9 IU, DAILY (1/D) AT NIGHT
     Route: 064
  5. MEGADYN PRONATAL [Concomitant]
     Dosage: UNK, DAILY (1/D)

REACTIONS (3)
  - DRUG EXPOSURE DURING PREGNANCY [None]
  - FOETAL MACROSOMIA [None]
  - PREMATURE BABY [None]
